FAERS Safety Report 6283556-6 (Version None)
Quarter: 2009Q3

REPORT INFORMATION
  Report Type: 
  Country: None (occurrence: None)
  Receive Date: 20090724
  Receipt Date: 20090506
  Transmission Date: 20100115
  Serious: Yes (Hospitalization)
  Sender: FDA-Public Use
  Company Number: US-ALEXION-A200900338

PATIENT
  Age: 47 Year
  Sex: Female
  Weight: 64.5 kg

DRUGS (16)
  1. SOLIRIS [Suspect]
     Indication: PROPHYLAXIS AGAINST TRANSPLANT REJECTION
     Dosage: 1200 MG, ONCE
     Route: 042
  2. SOLIRIS [Suspect]
     Dosage: 600 MG, FOUR
     Route: 042
  3. PROGRAF [Concomitant]
     Dosage: 3 MG, QD
  4. CELLCEPT [Concomitant]
     Dosage: 500 MG, BID
     Route: 048
  5. PREDNISONE TAB [Concomitant]
     Dosage: 5 MG, QD
     Route: 048
  6. OMEPRAZOLE [Concomitant]
     Dosage: 20 MG, QD
     Route: 048
  7. BACTRIM DS [Concomitant]
     Dosage: 1 UNK, QD
     Route: 048
  8. VALCYTE [Concomitant]
     Dosage: 900 MG, QD
     Route: 048
  9. MULTIVITAMIN                       /00831701/ [Concomitant]
     Dosage: UNK
     Route: 048
  10. LISINOPRIL [Concomitant]
     Dosage: 5 MG, QD
     Route: 048
  11. DILTIAZEM [Concomitant]
     Indication: ATRIAL FIBRILLATION
     Dosage: 480 UNK, QD
     Route: 048
  12. VITAMIN B12                        /00056201/ [Concomitant]
     Dosage: 500 UG, QD
     Route: 048
  13. FERROUS SULFATE TAB [Concomitant]
     Dosage: 325 UNK, QD
     Route: 048
  14. FOLIC ACID [Concomitant]
     Dosage: 1 MG, QD
  15. METOPROLOL SUCCINATE [Concomitant]
     Indication: ATRIAL FIBRILLATION
     Dosage: 100 MG, BID
     Route: 048
  16. ASPIRIN [Concomitant]
     Dosage: 325 MG, QD
     Route: 048
     Dates: end: 20090325

REACTIONS (6)
  - ARTHRALGIA [None]
  - FATIGUE [None]
  - HEADACHE [None]
  - HYPERPARATHYROIDISM TERTIARY [None]
  - NAUSEA [None]
  - VOMITING [None]
